FAERS Safety Report 7277887-0 (Version None)
Quarter: 2011Q1

REPORT INFORMATION
  Report Type: 
  Country: None (occurrence: None)
  Receive Date: 20110207
  Receipt Date: 20110127
  Transmission Date: 20110831
  Serious: Yes (Other)
  Sender: FDA-Public Use
  Company Number: FR-ROCHE-612820

PATIENT
  Age: 19 Year
  Sex: Female
  Weight: 53 kg

DRUGS (1)
  1. CELLCEPT [Suspect]
     Dosage: DOSAGE REGIMEN UNKNOWN
     Route: 065

REACTIONS (2)
  - HAEMATURIA [None]
  - THROMBOSIS [None]
